FAERS Safety Report 24788161 (Version 2)
Quarter: 2025Q1

REPORT INFORMATION
  Report Type: Report from Study
  Country: CA (occurrence: CA)
  Receive Date: 20241230
  Receipt Date: 20250128
  Transmission Date: 20250409
  Serious: Yes (Other)
  Sender: ROCHE
  Company Number: CA-002147023-PHHY2013CA106395

PATIENT
  Age: 39 Year
  Sex: Female

DRUGS (13)
  1. XOLAIR [Suspect]
     Active Substance: OMALIZUMAB
     Indication: Chronic spontaneous urticaria
     Route: 058
     Dates: start: 20130920
  2. XOLAIR [Suspect]
     Active Substance: OMALIZUMAB
     Route: 058
     Dates: end: 20160919
  3. XOLAIR [Suspect]
     Active Substance: OMALIZUMAB
     Route: 058
     Dates: start: 20160920
  4. XOLAIR [Suspect]
     Active Substance: OMALIZUMAB
     Route: 058
     Dates: start: 20160930
  5. XOLAIR [Suspect]
     Active Substance: OMALIZUMAB
     Route: 058
     Dates: start: 20170224
  6. XOLAIR [Suspect]
     Active Substance: OMALIZUMAB
     Route: 058
     Dates: start: 20190826
  7. XOLAIR [Suspect]
     Active Substance: OMALIZUMAB
     Route: 058
     Dates: start: 20180110
  8. XOLAIR [Suspect]
     Active Substance: OMALIZUMAB
     Route: 058
  9. XOLAIR [Suspect]
     Active Substance: OMALIZUMAB
     Route: 058
     Dates: start: 20230113
  10. XOLAIR [Suspect]
     Active Substance: OMALIZUMAB
     Route: 058
     Dates: start: 20230113
  11. SINGULAIR [Concomitant]
     Active Substance: MONTELUKAST SODIUM
     Indication: Product used for unknown indication
     Route: 065
  12. SINGULAIR [Concomitant]
     Active Substance: MONTELUKAST SODIUM
     Route: 065
  13. Reactine [Concomitant]
     Indication: Product used for unknown indication
     Route: 065
     Dates: start: 202501

REACTIONS (22)
  - Blood pressure decreased [Recovered/Resolved]
  - Hyperhidrosis [Recovering/Resolving]
  - Skin burning sensation [Unknown]
  - Pain of skin [Unknown]
  - Skin swelling [Unknown]
  - Tongue discomfort [Unknown]
  - Dyspepsia [Unknown]
  - Oesophageal pain [Unknown]
  - Abdominal pain upper [Unknown]
  - Allergy to chemicals [Unknown]
  - Amenorrhoea [Unknown]
  - Pelvic pain [Unknown]
  - Migraine [Unknown]
  - Dizziness [Recovering/Resolving]
  - Headache [Recovering/Resolving]
  - Fatigue [Recovering/Resolving]
  - Urinary tract infection [Unknown]
  - Burn oesophageal [Unknown]
  - Obstructive airways disorder [Recovering/Resolving]
  - Skin burning sensation [Unknown]
  - Urticaria [Unknown]
  - Gastrooesophageal reflux disease [Unknown]

NARRATIVE: CASE EVENT DATE: 20130920
